FAERS Safety Report 19435904 (Version 4)
Quarter: 2022Q2

REPORT INFORMATION
  Report Type: Report from Study
  Country: CA (occurrence: CA)
  Receive Date: 20210618
  Receipt Date: 20220531
  Transmission Date: 20220721
  Serious: Yes (Hospitalization, Other)
  Sender: FDA-Public Use
  Company Number: CA-TAKEDA-2020TUS027651

PATIENT
  Age: 74 Year
  Sex: Female

DRUGS (3)
  1. VEDOLIZUMAB [Suspect]
     Active Substance: VEDOLIZUMAB
     Indication: Crohn^s disease
     Dosage: 300 MILLIGRAM
     Route: 042
     Dates: start: 20200224
  2. VEDOLIZUMAB [Suspect]
     Active Substance: VEDOLIZUMAB
     Dosage: 300 MILLIGRAM
     Route: 042
  3. VEDOLIZUMAB [Suspect]
     Active Substance: VEDOLIZUMAB
     Dosage: 300 MILLIGRAM
     Route: 042

REACTIONS (9)
  - Peritonitis [Recovered/Resolved]
  - Sepsis [Recovered/Resolved]
  - Respiratory failure [Recovered/Resolved]
  - Gastrointestinal stenosis [Not Recovered/Not Resolved]
  - General physical health deterioration [Unknown]
  - Wound [Unknown]
  - Decubitus ulcer [Unknown]
  - Crohn^s disease [Not Recovered/Not Resolved]
  - Weight decreased [Unknown]
